FAERS Safety Report 5735813-7 (Version None)
Quarter: 2008Q2

REPORT INFORMATION
  Report Type: 
  Country: None (occurrence: None)
  Receive Date: 20080508
  Receipt Date: 20080508
  Transmission Date: 20081010
  Serious: Yes (Life-Threatening)
  Sender: FDA-Public Use
  Company Number: None

PATIENT
  Age: 19 Year
  Sex: Male
  Weight: 35.41 kg

DRUGS (2)
  1. PERCOCET [Suspect]
     Indication: PAIN
     Dosage: 1 TO 2 TABLETS Q3H PO
     Route: 048
  2. MORPHINE SULFATE [Suspect]
     Dosage: 15MG BID PO
     Route: 048

REACTIONS (1)
  - RESPIRATORY DEPRESSION [None]
